FAERS Safety Report 25049707 (Version 2)
Quarter: 2025Q1

REPORT INFORMATION
  Report Type: Spontaneous
  Country: CA (occurrence: CA)
  Receive Date: 20250307
  Receipt Date: 20250322
  Transmission Date: 20250408
  Serious: Yes (Hospitalization, Other)
  Sender: AUROBINDO
  Company Number: CA-MLMSERVICE-20250217-PI403389-00218-1

PATIENT
  Age: 68 Year
  Sex: Female

DRUGS (7)
  1. METHOTREXATE [Suspect]
     Active Substance: METHOTREXATE
     Indication: Sjogren^s syndrome
     Route: 065
  2. METHOTREXATE [Suspect]
     Active Substance: METHOTREXATE
     Indication: Rheumatoid arthritis
  3. ADALIMUMAB [Suspect]
     Active Substance: ADALIMUMAB
     Indication: Sjogren^s syndrome
     Route: 065
  4. ADALIMUMAB [Suspect]
     Active Substance: ADALIMUMAB
     Indication: Rheumatoid arthritis
  5. DOXYCYCLINE [Concomitant]
     Active Substance: DOXYCYCLINE
     Indication: Product used for unknown indication
     Route: 048
  6. METHYLPREDNISOLONE [Concomitant]
     Active Substance: METHYLPREDNISOLONE
     Indication: Product used for unknown indication
     Route: 042
  7. PREDNISONE [Concomitant]
     Active Substance: PREDNISONE
     Indication: Product used for unknown indication
     Route: 048

REACTIONS (6)
  - Hypersensitivity pneumonitis [Recovering/Resolving]
  - Histoplasmosis disseminated [Recovering/Resolving]
  - Cholestasis [Recovering/Resolving]
  - Granulomatous liver disease [Recovering/Resolving]
  - Respiratory failure [Recovering/Resolving]
  - Hypertransaminasaemia [Recovering/Resolving]
